FAERS Safety Report 10281901 (Version 1)
Quarter: 2014Q3

REPORT INFORMATION
  Report Type: Spontaneous
  Country: SG (occurrence: SG)
  Receive Date: 20140707
  Receipt Date: 20140707
  Transmission Date: 20150326
  Serious: Yes (Other)
  Sender: FDA-Public Use
  Company Number: SG-ENDO PHARMACEUTICALS INC.-AVEE20140114

PATIENT

DRUGS (1)
  1. AVEED [Suspect]
     Active Substance: TESTOSTERONE UNDECANOATE
     Indication: PRODUCT USED FOR UNKNOWN INDICATION
     Dosage: UNKNOWN
     Route: 030
     Dates: end: 201406

REACTIONS (1)
  - Chorioretinopathy [Unknown]

NARRATIVE: CASE EVENT DATE: 201406
